FAERS Safety Report 4829267-2 (Version None)
Quarter: 2005Q4

REPORT INFORMATION
  Report Type: 
  Country: None (occurrence: None)
  Receive Date: 20051028
  Receipt Date: 20050805
  Transmission Date: 20060501
  Serious: No
  Sender: FDA-Public Use
  Company Number: COT_0165_2005

PATIENT
  Age: 76 Year
  Sex: Female
  Weight: 41.7309 kg

DRUGS (2)
  1. VENTAVIS [Suspect]
     Indication: PULMONARY HYPERTENSION
     Dosage: 5 MCG VARIABLE IH
     Route: 055
     Dates: start: 20050804
  2. VENTAVIS [Suspect]
     Indication: PULMONARY HYPERTENSION
     Dosage: 2.5 MCG ONCE IH
     Route: 055
     Dates: start: 20050804, end: 20050804

REACTIONS (2)
  - NAUSEA [None]
  - PAIN IN JAW [None]
